FAERS Safety Report 4263249-7 (Version None)
Quarter: 2004Q1

REPORT INFORMATION
  Report Type: 
  Country: None (occurrence: None)
  Receive Date: 20040104
  Receipt Date: 20040104
  Transmission Date: 20041129
  Serious: Yes (Hospitalization, Other)
  Sender: FDA-Public Use
  Company Number: None

PATIENT
  Age: 36 Year
  Sex: Female
  Weight: 39.0093 kg

DRUGS (1)
  1. TAMIFLU [Suspect]
     Indication: INFLUENZA
     Dosage: 75 MG ORAL
     Route: 048
     Dates: start: 20031231, end: 20031231

REACTIONS (4)
  - DIZZINESS [None]
  - HEADACHE [None]
  - LETHARGY [None]
  - VOMITING [None]
